FAERS Safety Report 7530882-6 (Version None)
Quarter: 2011Q2

REPORT INFORMATION
  Report Type: 
  Country: None (occurrence: None)
  Receive Date: 20110608
  Receipt Date: 20110531
  Transmission Date: 20111010
  Serious: Yes (Hospitalization)
  Sender: FDA-Public Use
  Company Number: US-BIOGENIDEC-2010BI019749

PATIENT
  Age: 44 Year
  Sex: Female

DRUGS (2)
  1. AVONEX [Suspect]
     Indication: MULTIPLE SCLEROSIS
     Route: 030
     Dates: start: 19980702, end: 20030509
  2. AVONEX [Suspect]
     Route: 030
     Dates: start: 20091209

REACTIONS (2)
  - PRECANCEROUS CELLS PRESENT [None]
  - BONE CYST [None]
